FAERS Safety Report 7364209-X (Version None)
Quarter: 2011Q1

REPORT INFORMATION
  Report Type: 
  Country: None (occurrence: None)
  Receive Date: 20110321
  Receipt Date: 20110311
  Transmission Date: 20110831
  Serious: Yes (Death, Hospitalization)
  Sender: FDA-Public Use
  Company Number: US-MILLENNIUM PHARMACEUTICALS, INC.-2011-00689

PATIENT
  Sex: Female

DRUGS (25)
  1. METHADONE [Concomitant]
     Dosage: 10 UNK, UNK
     Route: 048
  2. BENADRYL [Concomitant]
     Indication: ORAL PAIN
     Dosage: UNK
     Route: 048
  3. ATACAND [Concomitant]
     Indication: HYPERTENSION
     Dosage: UNK
     Route: 048
  4. DIOVAN HCT [Concomitant]
     Indication: PRODUCT USED FOR UNKNOWN INDICATION
     Dosage: UNK
     Route: 048
  5. LISINOPRIL [Concomitant]
     Indication: BLOOD PRESSURE
     Dosage: 20 MG, QD
     Route: 048
  6. REVLIMID [Concomitant]
     Indication: MULTIPLE MYELOMA
     Dosage: 25 MG, QD
     Route: 048
  7. GRANISETRON HCL [Concomitant]
     Indication: PRODUCT USED FOR UNKNOWN INDICATION
     Dosage: 3.1 MG, 1/WEEK
     Route: 061
  8. METHADONE [Concomitant]
     Indication: BREAKTHROUGH PAIN
     Dosage: 20 MG, BID
  9. ANZEMET [Concomitant]
     Indication: PRODUCT USED FOR UNKNOWN INDICATION
     Dosage: 100 MG, UNK
     Route: 048
  10. PHENERGAN HCL [Concomitant]
     Indication: NAUSEA
     Dosage: 25 MG, PRN
     Route: 048
  11. ATIVAN [Concomitant]
     Indication: NAUSEA
     Dosage: 1 MG, PRN
     Route: 048
  12. DEXAMETHASONE [Concomitant]
     Indication: NAUSEA
     Dosage: 4 MG, BID
     Route: 048
  13. VELCADE [Suspect]
     Indication: MULTIPLE MYELOMA
     Dosage: 2.3 MG, CYCLIC
     Route: 042
     Dates: start: 20110119
  14. LIDOCAINE [Concomitant]
     Indication: ORAL PAIN
     Dosage: UNK
     Route: 048
  15. NORCO [Concomitant]
     Indication: BREAKTHROUGH PAIN
     Dosage: UNK
     Route: 048
  16. NEXIUM [Concomitant]
     Indication: PRODUCT USED FOR UNKNOWN INDICATION
     Dosage: 40 MG, QD
     Route: 048
  17. HYDROCODONE BITARTRATE AND ACETAMINOPHEN [Concomitant]
     Indication: PAIN
     Dosage: UNK
     Route: 048
  18. ASPIRIN [Concomitant]
     Indication: THROMBOSIS PROPHYLAXIS
     Dosage: 325 MG, QD
     Route: 048
  19. OXYCODONE [Concomitant]
     Indication: PAIN
     Dosage: 15 MG, PRN
     Route: 048
  20. METOPROLOL SUCCINATE [Concomitant]
     Indication: BLOOD PRESSURE
     Dosage: 50 MG, BID
     Route: 048
  21. SULFAMETHOXAZOLE AND TRIMETHOPRIM [Concomitant]
     Indication: ANTIFUNGAL PROPHYLAXIS
     Dosage: UNK
     Route: 048
  22. ZOFRAN [Concomitant]
     Indication: NAUSEA
     Dosage: 8 MG, PRN
     Route: 048
  23. MAALOX                             /00082501/ [Concomitant]
     Indication: ORAL PAIN
     Dosage: UNK
     Route: 048
  24. NYSTATIN [Concomitant]
     Indication: CANDIDIASIS
     Dosage: 5 ML, TID
     Route: 048
  25. PROCHLORPERAZINE [Concomitant]
     Indication: NAUSEA
     Dosage: 10 MG, PRN
     Route: 048

REACTIONS (1)
  - RENAL FAILURE [None]
